FAERS Safety Report 18316001 (Version 1)
Quarter: 2020Q3

REPORT INFORMATION
  Report Type: Spontaneous
  Country: DE (occurrence: DE)
  Receive Date: 20200927
  Receipt Date: 20200927
  Transmission Date: 20201103
  Serious: Yes (Hospitalization)
  Sender: FDA-Public Use
  Company Number: DE-TEVA-2020-DE-1831248

PATIENT
  Age: 80 Year
  Sex: Male

DRUGS (9)
  1. LEVETIRACETAM. [Suspect]
     Active Substance: LEVETIRACETAM
     Dosage: 1000 MILLIGRAM DAILY; 1?0?1?0,
     Route: 048
  2. PIPAMPERON [Suspect]
     Active Substance: PIPAMPERONE HYDROCHLORIDE
     Dosage: 40 MILLIGRAM DAILY; 0?0?1?0,
     Route: 048
  3. MELPERON [Suspect]
     Active Substance: MELPERONE
     Dosage: 25 MG, 1?1?2?0,
     Route: 048
  4. PHENPROCOUMON [Concomitant]
     Active Substance: PHENPROCOUMON
     Dosage: .25 DOSAGE FORMS DAILY; 3 MG, 0.25?0?0?0
     Route: 048
  5. INSULIN (HUMAN) [Concomitant]
     Active Substance: INSULIN HUMAN
     Dosage: NK IE, BY VALUE, AMPOULES
     Route: 058
  6. FOLSAURE [Concomitant]
     Active Substance: FOLIC ACID
     Dosage: 5 MILLIGRAM DAILY; 1?0?0?0,
     Route: 048
  7. MIRTAZAPIN [Concomitant]
     Active Substance: MIRTAZAPINE
     Dosage: 15 MILLIGRAM DAILY;  0?0?1?0
     Route: 048
  8. TORASEMID [Concomitant]
     Active Substance: TORSEMIDE
     Dosage: .5 DOSAGE FORMS DAILY; 10 MG, 0.5?0?0?0,
     Route: 048
  9. LEVOTHYROXIN?NATRIUM [Concomitant]
     Active Substance: LEVOTHYROXINE SODIUM
     Dosage: 125 MICROGRAM DAILY; 1?0?0?0
     Route: 048

REACTIONS (5)
  - Disorientation [Unknown]
  - Wound [Unknown]
  - Depressed level of consciousness [Unknown]
  - Confusional state [Unknown]
  - Fall [Unknown]
